FAERS Safety Report 25297526 (Version 5)
Quarter: 2025Q3

REPORT INFORMATION
  Report Type: Report from Study
  Country: US (occurrence: US)
  Receive Date: 20250511
  Receipt Date: 20250806
  Transmission Date: 20251021
  Serious: No
  Sender: JOHNSON AND JOHNSON
  Company Number: US-JNJFOC-20250437539

PATIENT
  Age: 64 Year
  Sex: Female

DRUGS (2)
  1. STELARA [Suspect]
     Active Substance: USTEKINUMAB
     Indication: Product used for unknown indication
     Route: 058
  2. STELARA [Suspect]
     Active Substance: USTEKINUMAB

REACTIONS (5)
  - Device issue [Unknown]
  - Product dose omission issue [Unknown]
  - Condition aggravated [Unknown]
  - Diarrhoea [Unknown]
  - Muscle spasms [Unknown]

NARRATIVE: CASE EVENT DATE: 20250425
